FAERS Safety Report 9995319 (Version 2)
Quarter: 2014Q1

REPORT INFORMATION
  Report Type: Spontaneous
  Country: JP (occurrence: JP)
  Receive Date: 20140311
  Receipt Date: 20140319
  Transmission Date: 20141002
  Serious: Yes (Hospitalization)
  Sender: FDA-Public Use
  Company Number: JP-ASTELLAS-2014JP002085

PATIENT
  Age: 67 Year
  Sex: Male

DRUGS (5)
  1. VESICARE [Suspect]
     Indication: HYPERTONIC BLADDER
     Dosage: 5 MG, UID/QD
     Route: 048
     Dates: start: 20131026
  2. VESICARE [Suspect]
     Indication: NOCTURIA
     Dosage: 5 MG, UID/QD
     Route: 048
     Dates: start: 20100921, end: 20101213
  3. HARNAL D [Concomitant]
     Indication: BENIGN PROSTATIC HYPERPLASIA
     Dosage: 0.2 MG, UID/QD
     Route: 048
     Dates: start: 20100921
  4. LOCHOL                             /01224502/ [Concomitant]
     Dosage: 30 MG, UID/QD
     Route: 048
     Dates: start: 200609, end: 20140203
  5. DIOVAN [Concomitant]
     Dosage: 40 MG, UID/QD
     Route: 048
     Dates: start: 200609

REACTIONS (1)
  - Sick sinus syndrome [Recovered/Resolved]
